FAERS Safety Report 11067553 (Version 1)
Quarter: 2015Q2

REPORT INFORMATION
  Report Type: Spontaneous
  Country: AU (occurrence: None)
  Receive Date: 20150424
  Receipt Date: 20150424
  Transmission Date: 20150821
  Serious: Yes (Death)
  Sender: FDA-Public Use
  Company Number: None

PATIENT
  Age: 46 Year
  Sex: Female
  Weight: 55 kg

DRUGS (5)
  1. EFFEXO [Concomitant]
  2. HALOPERIDOL. [Suspect]
     Active Substance: HALOPERIDOL
     Indication: BIPOLAR I DISORDER
  3. HALOPERIDOL. [Concomitant]
     Active Substance: HALOPERIDOL
  4. LI [Concomitant]
  5. ORANZAPINE [Concomitant]

REACTIONS (9)
  - Tremor [None]
  - Completed suicide [None]
  - Hyperhidrosis [None]
  - Bradyphrenia [None]
  - Judgement impaired [None]
  - Cerebral disorder [None]
  - Intentional overdose [None]
  - Masked facies [None]
  - Fear [None]
